FAERS Safety Report 17148426 (Version 3)
Quarter: 2020Q3

REPORT INFORMATION
  Report Type: Spontaneous
  Country: NO (occurrence: NO)
  Receive Date: 20191212
  Receipt Date: 20200817
  Transmission Date: 20201102
  Serious: Yes (Hospitalization, Other)
  Sender: FDA-Public Use
  Company Number: NO-INCYTE CORPORATION-2019IN012272

PATIENT

DRUGS (2)
  1. JAKAVI [Suspect]
     Active Substance: RUXOLITINIB
     Indication: MYELOFIBROSIS
     Dosage: UNK
     Route: 065
     Dates: end: 20191230
  2. JAKAVI [Suspect]
     Active Substance: RUXOLITINIB
     Dosage: 15 MG, BID
     Route: 048
     Dates: start: 20160408, end: 20191230

REACTIONS (18)
  - Inappropriate antidiuretic hormone secretion [Recovered/Resolved]
  - Oesophageal candidiasis [Recovered/Resolved]
  - Herpes virus infection [Unknown]
  - Weight decreased [Unknown]
  - Pyrexia [Unknown]
  - Abdominal pain upper [Unknown]
  - Decreased appetite [Unknown]
  - Encephalitis [Recovered/Resolved with Sequelae]
  - Eye infection [Unknown]
  - Visual impairment [Unknown]
  - Amnesia [Unknown]
  - Nausea [Unknown]
  - Retinitis [Recovered/Resolved with Sequelae]
  - Hyponatraemia [Recovered/Resolved]
  - Vomiting [Unknown]
  - Cognitive disorder [Unknown]
  - Necrotising retinitis [Recovered/Resolved with Sequelae]
  - Asthenia [Unknown]

NARRATIVE: CASE EVENT DATE: 2019
